FAERS Safety Report 5929717-4 (Version None)
Quarter: 2008Q4

REPORT INFORMATION
  Report Type: 
  Country: None (occurrence: None)
  Receive Date: 20081021
  Receipt Date: 20081010
  Transmission Date: 20090506
  Serious: Yes (Hospitalization)
  Sender: FDA-Public Use
  Company Number: 2008BI018333

PATIENT
  Age: 56 Year
  Sex: Male

DRUGS (3)
  1. AVONEX [Suspect]
     Indication: MULTIPLE SCLEROSIS
     Dosage: 30 UG; IM
     Route: 030
     Dates: start: 19971201
  2. DECADRON [Concomitant]
  3. TYSABRI [Concomitant]

REACTIONS (10)
  - AMNESIA [None]
  - ARTHRITIS [None]
  - ATRIAL FIBRILLATION [None]
  - FALL [None]
  - FEELING ABNORMAL [None]
  - INSOMNIA [None]
  - MALAISE [None]
  - MUSCLE SPASMS [None]
  - POSTOPERATIVE FEVER [None]
  - VITAMIN D DECREASED [None]
